FAERS Safety Report 12351939 (Version 1)
Quarter: 2016Q2

REPORT INFORMATION
  Report Type: Spontaneous
  Country: US (occurrence: US)
  Receive Date: 20160510
  Receipt Date: 20160510
  Transmission Date: 20160815
  Serious: Yes (Death, Hospitalization, Other)
  Sender: FDA-Public Use
  Company Number: US-SA-2016SA090864

PATIENT
  Age: 29 Year
  Sex: Male
  Weight: 64.8 kg

DRUGS (4)
  1. CYTARABINE. [Suspect]
     Active Substance: CYTARABINE
     Indication: ACUTE MYELOID LEUKAEMIA
     Route: 065
  2. NEXAVAR [Suspect]
     Active Substance: SORAFENIB
     Indication: ACUTE MYELOID LEUKAEMIA
     Route: 065
     Dates: start: 201601, end: 20160308
  3. MYLOTARG [Suspect]
     Active Substance: GEMTUZUMAB OZOGAMICIN
     Indication: ACUTE MYELOID LEUKAEMIA
     Dosage: DOSE- 15 MG (MOST RECENT), 9 MG/M2 ON DAY 1AND DAY 15
     Route: 042
     Dates: start: 201603, end: 20160325
  4. CLOFARABINE [Suspect]
     Active Substance: CLOFARABINE
     Indication: ACUTE MYELOID LEUKAEMIA
     Route: 065

REACTIONS (28)
  - Vomiting [Fatal]
  - Enterococcal infection [Unknown]
  - Pulmonary oedema [Unknown]
  - Pneumonia [Unknown]
  - Coagulopathy [Unknown]
  - Disease progression [Fatal]
  - Body temperature increased [Fatal]
  - Prothrombin time prolonged [Unknown]
  - Chest pain [Fatal]
  - Graft versus host disease [Unknown]
  - Failure to thrive [Fatal]
  - Haematocrit decreased [Fatal]
  - Hospice care [Fatal]
  - Sinusitis [Unknown]
  - Eye swelling [Recovering/Resolving]
  - Eyelid ptosis [Unknown]
  - Nausea [Fatal]
  - Thrombocytopenia [Fatal]
  - Acute respiratory distress syndrome [Unknown]
  - Periorbital cellulitis [Recovering/Resolving]
  - International normalised ratio increased [Unknown]
  - Chloroma [Fatal]
  - Blood bilirubin increased [Fatal]
  - Ascites [Unknown]
  - Pain [Fatal]
  - Haemoglobin decreased [Fatal]
  - Oxygen saturation decreased [Fatal]
  - Enterococcal infection [Unknown]

NARRATIVE: CASE EVENT DATE: 20160224
